FAERS Safety Report 21390879 (Version 1)
Quarter: 2022Q3

REPORT INFORMATION
  Report Type: Spontaneous
  Country: US (occurrence: US)
  Receive Date: 20220929
  Receipt Date: 20220929
  Transmission Date: 20221026
  Serious: Yes (Other)
  Sender: FDA-Public Use
  Company Number: US-NOVARTISPH-NVSC2022US219030

PATIENT
  Sex: Male

DRUGS (1)
  1. BETOPTIC S [Suspect]
     Active Substance: BETAXOLOL HYDROCHLORIDE
     Indication: Product used for unknown indication
     Dosage: 0.25 UNK, BID
     Route: 065

REACTIONS (3)
  - Product contamination microbial [Unknown]
  - Eye pain [Unknown]
  - Eye irritation [Unknown]
